FAERS Safety Report 13577827 (Version 1)
Quarter: 2017Q2

REPORT INFORMATION
  Report Type: Spontaneous
  Country: IT (occurrence: IT)
  Receive Date: 20170524
  Receipt Date: 20170524
  Transmission Date: 20170830
  Serious: Yes (Other)
  Sender: FDA-Public Use
  Company Number: IT-TEVA-771285ACC

PATIENT
  Sex: Female

DRUGS (1)
  1. RANITIDIN AUROBINDO150MG FILM-COATED TABLET [Suspect]
     Active Substance: RANITIDINE
     Indication: GASTRIC DISORDER
     Route: 048

REACTIONS (2)
  - Pruritus [Unknown]
  - Swelling face [Unknown]
